FAERS Safety Report 7969208-2 (Version None)
Quarter: 2011Q4

REPORT INFORMATION
  Report Type: 
  Country: None (occurrence: None)
  Receive Date: 20111209
  Receipt Date: 20111205
  Transmission Date: 20120403
  Serious: Yes (Death)
  Sender: FDA-Public Use
  Company Number: AU-B.I. PHARMACEUTICALS,INC./RIDGEFIELD-2011-AU-02226AU

PATIENT
  Sex: Male
  Weight: 74 kg

DRUGS (8)
  1. PERINDOPRIL ERBUMINE [Concomitant]
     Dosage: 5 MG
  2. FOSAMAX [Concomitant]
     Dosage: 10 MG
  3. XALATAN [Concomitant]
  4. LASIX M [Concomitant]
     Dosage: 20 MG
  5. PRADAXA [Suspect]
     Indication: MYOCARDIAL ISCHAEMIA
  6. ACETAMINOPHEN W/ CODEINE [Concomitant]
  7. PROGOUT [Concomitant]
     Dosage: 300 MG
  8. PRADAXA [Suspect]
     Indication: ATRIAL FIBRILLATION
     Dosage: 220 MG
     Dates: start: 20110808

REACTIONS (3)
  - ACUTE MYOCARDIAL INFARCTION [None]
  - HYPERTENSION [None]
  - ANGINA PECTORIS [None]
